FAERS Safety Report 25803898 (Version 1)
Quarter: 2025Q3

REPORT INFORMATION
  Report Type: Spontaneous
  Country: GB (occurrence: GB)
  Receive Date: 20250915
  Receipt Date: 20250915
  Transmission Date: 20251021
  Serious: Yes (Hospitalization)
  Sender: PFIZER
  Company Number: GB-PFIZER INC-202500180175

PATIENT
  Sex: Male

DRUGS (1)
  1. LORLATINIB [Suspect]
     Active Substance: LORLATINIB
     Indication: ALK gene rearrangement positive
     Dosage: 100 MG, 1X/DAY

REACTIONS (8)
  - Loss of personal independence in daily activities [Recovering/Resolving]
  - Mood altered [Recovering/Resolving]
  - Confusional state [Recovering/Resolving]
  - Memory impairment [Recovering/Resolving]
  - Fatigue [Recovering/Resolving]
  - Lethargy [Recovering/Resolving]
  - Hypersomnia [Recovering/Resolving]
  - Abnormal behaviour [Recovering/Resolving]
